FAERS Safety Report 7077547-5 (Version None)
Quarter: 2010Q4

REPORT INFORMATION
  Report Type: 
  Country: None (occurrence: None)
  Receive Date: 20101101
  Receipt Date: 20101020
  Transmission Date: 20110411
  Serious: Yes (Other)
  Sender: FDA-Public Use
  Company Number: JP-PFIZER INC-2010133452

PATIENT
  Age: 45 Year
  Sex: Female

DRUGS (6)
  1. LYRICA [Suspect]
     Indication: POST HERPETIC NEURALGIA
     Dosage: 75 MG, 1X/DAY
     Route: 048
     Dates: start: 20100830, end: 20100905
  2. POLARAMINE [Concomitant]
     Dosage: UNK, AS NEEDED
  3. VOLTAREN [Concomitant]
     Dosage: UNK, AS NEEDED
  4. GONAPURE [Concomitant]
  5. LANDSEN [Concomitant]
  6. TOLEDOMIN [Concomitant]
     Route: 048

REACTIONS (5)
  - ALOPECIA [None]
  - ANOVULATORY CYCLE [None]
  - BLOOD OESTROGEN DECREASED [None]
  - HOT FLUSH [None]
  - MENTAL IMPAIRMENT [None]
